FAERS Safety Report 9927175 (Version 1)
Quarter: 2014Q1

REPORT INFORMATION
  Report Type: Spontaneous
  Country: US (occurrence: US)
  Receive Date: 20140226
  Receipt Date: 20140226
  Transmission Date: 20141002
  Serious: No
  Sender: FDA-Public Use
  Company Number: US-AMGEN-USASP2014006384

PATIENT
  Age: 42 Year
  Sex: Male
  Weight: 77.1 kg

DRUGS (7)
  1. ENBREL [Suspect]
     Indication: PRODUCT USED FOR UNKNOWN INDICATION
     Dosage: 50 MG, QWK
     Route: 058
  2. GEMFIBROZIL [Concomitant]
     Dosage: 600 MG, UNK
  3. SIMVASTATIN [Concomitant]
     Dosage: 5 MG, UNK
  4. PRILOSEC                           /00661201/ [Concomitant]
     Dosage: 20 MG, UNK
  5. CLARITIN-D [Concomitant]
     Dosage: 5-120 MG, UNK
  6. VITAMIN B12                        /00056201/ [Concomitant]
     Dosage: 1000 CR
  7. METHOTREXATE [Concomitant]
     Dosage: 20 MG, UNK

REACTIONS (4)
  - Headache [Unknown]
  - Oropharyngeal pain [Unknown]
  - Nasal congestion [Unknown]
  - Respiratory tract congestion [Unknown]
